FAERS Safety Report 7813767-7 (Version None)
Quarter: 2011Q4

REPORT INFORMATION
  Report Type: 
  Country: None (occurrence: None)
  Receive Date: 20111014
  Receipt Date: 20110927
  Transmission Date: 20120403
  Serious: Yes (Other)
  Sender: FDA-Public Use
  Company Number: US-JNJFOC-20110911491

PATIENT
  Sex: Female
  Weight: 54.43 kg

DRUGS (3)
  1. BENADRYL [Concomitant]
     Indication: PREMEDICATION
  2. REMICADE [Suspect]
     Indication: CROHN'S DISEASE
     Route: 030
     Dates: start: 20101101, end: 20101201
  3. SOLU-MEDROL [Concomitant]
     Indication: PREMEDICATION

REACTIONS (8)
  - ABASIA [None]
  - PAIN IN EXTREMITY [None]
  - MOUTH ULCERATION [None]
  - LUPUS-LIKE SYNDROME [None]
  - ERYTHEMA [None]
  - RASH GENERALISED [None]
  - RASH [None]
  - INFUSION RELATED REACTION [None]
